FAERS Safety Report 13119050 (Version 1)
Quarter: 2017Q1

REPORT INFORMATION
  Report Type: Spontaneous
  Country: IT (occurrence: IT)
  Receive Date: 20170116
  Receipt Date: 20170116
  Transmission Date: 20170428
  Serious: Yes (Hospitalization)
  Sender: FDA-Public Use
  Company Number: IT-UNICHEM LABORATORIES LIMITED-UCM201701-000006

PATIENT
  Age: 3 Year
  Sex: Male

DRUGS (1)
  1. LAMOTRIGINE. [Suspect]
     Active Substance: LAMOTRIGINE

REACTIONS (14)
  - Bundle branch block right [Recovered/Resolved]
  - Hyperphagia [Not Recovered/Not Resolved]
  - Agitation [Recovered/Resolved]
  - Overdose [Unknown]
  - Sinus tachycardia [Recovered/Resolved]
  - Generalised tonic-clonic seizure [Recovered/Resolved]
  - Malaise [Recovered/Resolved]
  - Oculogyric crisis [Recovered/Resolved]
  - Accidental exposure to product by child [Unknown]
  - Loss of consciousness [Recovered/Resolved]
  - Toxicity to various agents [Unknown]
  - Restlessness [Recovered/Resolved]
  - Ataxia [Not Recovered/Not Resolved]
  - Dystonia [Recovered/Resolved]
